FAERS Safety Report 15863194 (Version 3)
Quarter: 2019Q1

REPORT INFORMATION
  Report Type: Spontaneous
  Country: US (occurrence: US)
  Receive Date: 20190124
  Receipt Date: 20190327
  Transmission Date: 20190417
  Serious: Yes (Death, Other)
  Sender: FDA-Public Use
  Company Number: US-JNJFOC-20190125121

PATIENT
  Sex: Male
  Weight: 59.42 kg

DRUGS (29)
  1. ZYTIGA [Suspect]
     Active Substance: ABIRATERONE ACETATE
     Indication: PROSTATE CANCER METASTATIC
     Route: 048
     Dates: start: 20170419
  2. GABAPENTIN. [Concomitant]
     Active Substance: GABAPENTIN
     Route: 048
  3. PROCHLORPERAZINE. [Concomitant]
     Active Substance: PROCHLORPERAZINE
     Indication: VOMITING
     Route: 065
  4. OLANZAPINE. [Concomitant]
     Active Substance: OLANZAPINE
     Route: 048
  5. OMEPRAZOLE. [Concomitant]
     Active Substance: OMEPRAZOLE
     Route: 048
  6. METHYLPHENIDATE. [Concomitant]
     Active Substance: METHYLPHENIDATE
     Route: 048
  7. MOTRIN [Concomitant]
     Active Substance: IBUPROFEN
     Indication: BONE PAIN
     Route: 065
  8. VITAMIN E [Concomitant]
     Active Substance: .ALPHA.-TOCOPHEROL
     Route: 048
  9. CLONAZEPAM. [Concomitant]
     Active Substance: CLONAZEPAM
     Route: 048
  10. FENTANYL. [Concomitant]
     Active Substance: FENTANYL
     Route: 062
  11. CALCIUM CARBONATE. [Concomitant]
     Active Substance: CALCIUM CARBONATE
     Route: 048
  12. DOCETAXEL. [Suspect]
     Active Substance: DOCETAXEL
     Indication: PROSTATE CANCER METASTATIC
     Route: 065
     Dates: start: 20161122
  13. OXYCODONE [Concomitant]
     Active Substance: OXYCODONE
     Route: 048
  14. ALENDRONATE [Concomitant]
     Active Substance: ALENDRONATE SODIUM
     Route: 050
  15. CHOLECALCIFEROL [Concomitant]
     Active Substance: CHOLECALCIFEROL
     Route: 048
  16. ACETAMINOPHEN W/HYDROCODONE [Concomitant]
     Active Substance: ACETAMINOPHEN\HYDROCODONE
     Route: 048
  17. ONDANSETRON [Concomitant]
     Active Substance: ONDANSETRON
     Indication: VOMITING
     Route: 048
  18. RITALIN [Concomitant]
     Active Substance: METHYLPHENIDATE HYDROCHLORIDE
     Route: 048
  19. VITAMIN E [Concomitant]
     Active Substance: .ALPHA.-TOCOPHEROL
     Route: 048
  20. ZOMETA [Concomitant]
     Active Substance: ZOLEDRONIC ACID
     Route: 042
  21. PROCHLORPERAZINE. [Concomitant]
     Active Substance: PROCHLORPERAZINE
     Indication: VOMITING
     Route: 065
  22. IBUPROFEN. [Concomitant]
     Active Substance: IBUPROFEN
     Route: 048
  23. PREDNISONE. [Concomitant]
     Active Substance: PREDNISONE
     Route: 065
  24. ZYPREXA [Concomitant]
     Active Substance: OLANZAPINE
  25. CASODEX [Concomitant]
     Active Substance: BICALUTAMIDE
     Route: 065
  26. CATAPRES [Concomitant]
     Active Substance: CLONIDINE HYDROCHLORIDE
     Indication: HOT FLUSH
     Route: 065
  27. LORATADINE. [Concomitant]
     Active Substance: LORATADINE
     Route: 048
  28. CLONIDINE. [Concomitant]
     Active Substance: CLONIDINE
     Route: 048
  29. FIRMAGON [Concomitant]
     Active Substance: DEGARELIX ACETATE
     Route: 065

REACTIONS (2)
  - Prostate cancer [Fatal]
  - Disability [Unknown]
